FAERS Safety Report 5759571-5 (Version None)
Quarter: 2008Q2

REPORT INFORMATION
  Report Type: 
  Country: None (occurrence: None)
  Receive Date: 20080605
  Receipt Date: 20080527
  Transmission Date: 20081010
  Serious: Yes (Other)
  Sender: FDA-Public Use
  Company Number: US-ABBOTT-08P-163-0453631-00

PATIENT
  Sex: Male
  Weight: 81.72 kg

DRUGS (6)
  1. HUMIRA [Suspect]
     Indication: RHEUMATOID ARTHRITIS
     Route: 058
     Dates: start: 20060101, end: 20080401
  2. FLUOXETINE HYDROCHLORIDE [Concomitant]
     Indication: DRUG USE FOR UNKNOWN INDICATION
     Route: 048
  3. MULTI-VITAMIN [Concomitant]
     Indication: VITAMIN SUPPLEMENTATION
     Route: 048
  4. PREGABALIN [Concomitant]
     Indication: DRUG USE FOR UNKNOWN INDICATION
  5. NAPROSYN [Concomitant]
     Indication: ARTHRALGIA
  6. STOMACH MEDICINE [Concomitant]
     Indication: GASTRIC DISORDER
     Route: 048

REACTIONS (1)
  - BLADDER CANCER [None]
